FAERS Safety Report 21418573 (Version 1)
Quarter: 2022Q4

REPORT INFORMATION
  Report Type: Spontaneous
  Country: US (occurrence: None)
  Receive Date: 20221005
  Receipt Date: 20221005
  Transmission Date: 20230112
  Serious: Yes (Hospitalization)
  Sender: FDA-Public Use
  Company Number: None

PATIENT
  Age: 53 Year
  Sex: Male

DRUGS (4)
  1. MEKINIST [Suspect]
     Active Substance: TRAMETINIB DIMETHYL SULFOXIDE
     Dosage: FREQUENCY : DAILY;?
     Route: 048
  2. TAFINLAR [Concomitant]
     Active Substance: DABRAFENIB MESYLATE
  3. LOSARTAN [Concomitant]
     Active Substance: LOSARTAN
  4. FOLIC ACID [Suspect]
     Active Substance: FOLIC ACID

REACTIONS (2)
  - Pyrexia [None]
  - Dyspnoea [None]

NARRATIVE: CASE EVENT DATE: 20220926
